FAERS Safety Report 23523236 (Version 8)
Quarter: 2025Q2

REPORT INFORMATION
  Report Type: Spontaneous
  Country: JP (occurrence: JP)
  Receive Date: 20240214
  Receipt Date: 20250515
  Transmission Date: 20250717
  Serious: Yes (Death, Hospitalization, Disabling, Other)
  Sender: ALEXION PHARMACEUTICALS
  Company Number: 2024A033546

PATIENT
  Age: 63 Year
  Weight: 71 kg

DRUGS (24)
  1. SAPHNELO [Suspect]
     Active Substance: ANIFROLUMAB-FNIA
     Indication: Systemic lupus erythematosus
  2. PREDNISOLONE [Suspect]
     Active Substance: PREDNISOLONE
     Indication: Systemic lupus erythematosus
     Dosage: 2 MILLIGRAM, QD
  3. PREDNISOLONE [Suspect]
     Active Substance: PREDNISOLONE
  4. GEMCITABINE [Concomitant]
     Active Substance: GEMCITABINE
     Indication: Lymphoma
  5. CISPLATIN [Concomitant]
     Active Substance: CISPLATIN
     Indication: Lymphoma
  6. HYDROXYCHLOROQUINE SULFATE [Concomitant]
     Active Substance: HYDROXYCHLOROQUINE SULFATE
     Indication: Lymphoma
  7. HYDROXYCHLOROQUINE SULFATE [Concomitant]
     Active Substance: HYDROXYCHLOROQUINE SULFATE
     Route: 065
  8. PLAQUENIL [Concomitant]
     Active Substance: HYDROXYCHLOROQUINE SULFATE
     Indication: Systemic lupus erythematosus
     Dosage: 200 MILLIGRAM, QD
  9. PLAQUENIL [Concomitant]
     Active Substance: HYDROXYCHLOROQUINE SULFATE
  10. Alfa-tocopherol nicotinate [Concomitant]
     Indication: Sjogren^s syndrome
     Dosage: 200 MILLIGRAM, TID
  11. BERAPROST SODIUM [Concomitant]
     Active Substance: BERAPROST SODIUM
     Indication: Sjogren^s syndrome
     Dosage: 40 MICROGRAM, TID
  12. BERAPROST SODIUM [Concomitant]
     Active Substance: BERAPROST SODIUM
  13. Saligren [Concomitant]
     Indication: Sjogren^s syndrome
     Dosage: 30 MILLIGRAM, TID
  14. Saligren [Concomitant]
  15. QUETIAPINE [Concomitant]
     Active Substance: QUETIAPINE
     Indication: Bipolar disorder
     Dosage: 100 MILLIGRAM, TID
  16. QUETIAPINE [Concomitant]
     Active Substance: QUETIAPINE
  17. VALPROATE SODIUM [Concomitant]
     Active Substance: VALPROATE SODIUM
     Indication: Bipolar disorder
     Dosage: 100 MILLIGRAM, TID
  18. VALPROATE SODIUM [Concomitant]
     Active Substance: VALPROATE SODIUM
  19. DAYVIGO [Concomitant]
     Active Substance: LEMBOREXANT
     Indication: Insomnia
     Dosage: 10 MILLIGRAM, QD
  20. DAYVIGO [Concomitant]
     Active Substance: LEMBOREXANT
  21. LUNESTA [Concomitant]
     Active Substance: ESZOPICLONE
     Indication: Insomnia
     Dosage: 2 MILLIGRAM, QD
  22. LUNESTA [Concomitant]
     Active Substance: ESZOPICLONE
  23. MAGNESIUM OXIDE [Concomitant]
     Active Substance: MAGNESIUM OXIDE
     Indication: Constipation
     Dosage: 660 MILLIGRAM, TID
  24. MAGNESIUM OXIDE [Concomitant]
     Active Substance: MAGNESIUM OXIDE

REACTIONS (6)
  - Lymphoma [Fatal]
  - COVID-19 pneumonia [Recovering/Resolving]
  - Pulmonary artery thrombosis [Recovering/Resolving]
  - Hypoxia [Recovering/Resolving]
  - Staphylococcal bacteraemia [Recovering/Resolving]
  - Atelectasis [Recovering/Resolving]
